FAERS Safety Report 6671220-0 (Version None)
Quarter: 2010Q2

REPORT INFORMATION
  Report Type: 
  Country: None (occurrence: None)
  Receive Date: 20100406
  Receipt Date: 20100406
  Transmission Date: 20101027
  Serious: No
  Sender: FDA-Public Use
  Company Number: None

PATIENT
  Sex: Male
  Weight: 103.4201 kg

DRUGS (1)
  1. LANSOPRAZOLE [Suspect]

REACTIONS (1)
  - DRUG INEFFECTIVE [None]
